FAERS Safety Report 6623920-6 (Version None)
Quarter: 2010Q1

REPORT INFORMATION
  Report Type: 
  Country: None (occurrence: None)
  Receive Date: 20100310
  Receipt Date: 20100303
  Transmission Date: 20100710
  Serious: Yes (Life-Threatening, Hospitalization)
  Sender: FDA-Public Use
  Company Number: GB-WYE-H13932810

PATIENT
  Age: 83 Year
  Sex: Male

DRUGS (5)
  1. AMIODARONE HCL [Suspect]
     Indication: DRUG USE FOR UNKNOWN INDICATION
     Dosage: 200 MG
     Route: 048
     Dates: start: 20091001, end: 20100101
  2. TIOTROPIUM BROMIDE [Concomitant]
  3. LISINOPRIL [Concomitant]
  4. DIPYRIDAMOLE [Concomitant]
  5. LEVOTHYROXINE [Concomitant]

REACTIONS (1)
  - MENTAL IMPAIRMENT [None]
